FAERS Safety Report 9601294 (Version 1)
Quarter: 2013Q4

REPORT INFORMATION
  Report Type: Spontaneous
  Country: US (occurrence: US)
  Receive Date: 20131006
  Receipt Date: 20131006
  Transmission Date: 20140711
  Serious: Yes (Other)
  Sender: FDA-Public Use
  Company Number: US-PFIZER INC-2013283964

PATIENT
  Age: 28 Year
  Sex: Female
  Weight: 68.03 kg

DRUGS (9)
  1. LYRICA [Suspect]
     Indication: NEURALGIA
     Dosage: 50 MG, 3X/DAY
     Route: 048
     Dates: start: 20130926, end: 20131001
  2. NEURONTIN [Concomitant]
     Dosage: UNK
  3. PROZAC [Concomitant]
     Dosage: UNK
  4. FLEXERIL [Concomitant]
     Dosage: UNK
  5. LITHIUM [Concomitant]
     Dosage: UNK
  6. ATIVAN [Concomitant]
     Dosage: UNK
  7. XANAX [Concomitant]
     Dosage: UNK
  8. CLONAZEPAM [Concomitant]
     Dosage: UNK
  9. PRAZOSIN [Concomitant]
     Dosage: UNK

REACTIONS (9)
  - Suicidal ideation [Unknown]
  - Mania [Unknown]
  - Aggression [Unknown]
  - Depression [Unknown]
  - Vomiting [Unknown]
  - Mental disorder [Unknown]
  - Feeling abnormal [Unknown]
  - Mood swings [Unknown]
  - Neuralgia [Unknown]
